FAERS Safety Report 24268929 (Version 1)
Quarter: 2024Q3

REPORT INFORMATION
  Report Type: Spontaneous
  Country: US (occurrence: US)
  Receive Date: 20240830
  Receipt Date: 20240830
  Transmission Date: 20241017
  Serious: No
  Sender: ABBVIE
  Company Number: US-ABBVIE-5893777

PATIENT
  Age: 47 Year
  Sex: Male

DRUGS (4)
  1. BOTOX COSMETIC [Suspect]
     Active Substance: ONABOTULINUMTOXINA
     Indication: Face lift
     Dosage: TIME INTERVAL: AS NECESSARY: DEPRESSOR ANGULI ORIS MUSCLE
     Route: 065
     Dates: start: 2023, end: 2023
  2. BOTOX COSMETIC [Suspect]
     Active Substance: ONABOTULINUMTOXINA
     Indication: Face lift
     Dosage: TIME INTERVAL: AS NECESSARY: DEPRESSOR ANGULI ORIS MUSCLE
     Route: 065
     Dates: start: 20240717, end: 20240717
  3. BOTOX COSMETIC [Suspect]
     Active Substance: ONABOTULINUMTOXINA
     Indication: Face lift
     Dosage: TIME INTERVAL: AS NECESSARY: MENTALIS/CHIN AREA
     Route: 065
     Dates: start: 2023, end: 2023
  4. BOTOX COSMETIC [Suspect]
     Active Substance: ONABOTULINUMTOXINA
     Indication: Face lift
     Dosage: TIME INTERVAL: AS NECESSARY: MENTALIS/CHIN AREA
     Route: 065
     Dates: start: 20240717, end: 20240717

REACTIONS (1)
  - Off label use [Unknown]

NARRATIVE: CASE EVENT DATE: 20230101
